FAERS Safety Report 16802106 (Version 1)
Quarter: 2019Q3

REPORT INFORMATION
  Report Type: Spontaneous
  Country: CA (occurrence: CA)
  Receive Date: 20190912
  Receipt Date: 20190912
  Transmission Date: 20191005
  Serious: Yes (Other)
  Sender: FDA-Public Use
  Company Number: CA-PFIZER INC-2019396164

PATIENT
  Age: 67 Year
  Sex: Female

DRUGS (15)
  1. METHOTREXATE SODIUM. [Suspect]
     Active Substance: METHOTREXATE SODIUM
     Indication: RHEUMATOID ARTHRITIS
     Dosage: UNK
     Route: 065
  2. ENBREL [Suspect]
     Active Substance: ETANERCEPT
     Indication: RHEUMATOID ARTHRITIS
     Dosage: 50 MILLIGRAM
     Route: 065
  3. CIMZIA [Suspect]
     Active Substance: CERTOLIZUMAB PEGOL
     Dosage: UNK
     Route: 065
  4. HYDROXYCHLOROQUINE SULFATE. [Suspect]
     Active Substance: HYDROXYCHLOROQUINE SULFATE
     Dosage: UNK
     Route: 065
  5. ACTEMRA [Suspect]
     Active Substance: TOCILIZUMAB
     Dosage: UNK
     Route: 065
  6. FUROSEMIDE. [Concomitant]
     Active Substance: FUROSEMIDE
     Dosage: 40 MILLIGRAM, QD
  7. XALATAN [Concomitant]
     Active Substance: LATANOPROST
     Dosage: 50 MICROGRAM, QD
  8. MORPHINE [Concomitant]
     Active Substance: MORPHINE
     Dosage: UNK
  9. ORENCIA [Suspect]
     Active Substance: ABATACEPT
     Dosage: UNK
     Route: 065
  10. ESTROGEL [Concomitant]
     Active Substance: ESTRADIOL
     Dosage: 0.6 PERCENT, TID
  11. VALSARTAN. [Concomitant]
     Active Substance: VALSARTAN
     Dosage: 320 MILLIGRAM, QD
  12. ERGOCALCIFEROL. [Concomitant]
     Active Substance: ERGOCALCIFEROL
     Dosage: UNK UNK, QWK
  13. DORZOLAMIDE HYDROCHLORIDE AND TIMOLOL MALEATE [Concomitant]
     Active Substance: DORZOLAMIDE HYDROCHLORIDE\TIMOLOL MALEATE
     Dosage: UNK UNK, BID
  14. POTASSIUM CHLORIDE. [Concomitant]
     Active Substance: POTASSIUM CHLORIDE
     Dosage: 1500 MILLIGRAM, QD
  15. ZINGIBER OFFICINALE [Concomitant]
     Active Substance: GINGER
     Dosage: 500 MILLIGRAM

REACTIONS (8)
  - Drug intolerance [Unknown]
  - Bronchitis [Unknown]
  - Drug ineffective [Unknown]
  - Diverticulitis [Unknown]
  - Glaucoma [Unknown]
  - Colitis microscopic [Unknown]
  - C-reactive protein increased [Unknown]
  - Synovitis [Unknown]
